FAERS Safety Report 17302322 (Version 1)
Quarter: 2020Q1

REPORT INFORMATION
  Report Type: Report from Study
  Country: US (occurrence: ID)
  Receive Date: 20200122
  Receipt Date: 20200122
  Transmission Date: 20200409
  Serious: Yes (Death, Hospitalization, Other)
  Sender: FDA-Public Use
  Company Number: ID-ASTRAZENECA-2019SF12185

PATIENT
  Age: 24604 Day
  Sex: Female

DRUGS (1)
  1. FASLODEX [Suspect]
     Active Substance: FULVESTRANT
     Dosage: 500 MG AT INTERVALS OF ONE MONTH, WITH AN ADDITIONAL 500 MG DOSE GIVEN TWO WEEKS AFTER THE INITIA...
     Route: 030

REACTIONS (6)
  - Pain in extremity [Fatal]
  - Gait inability [Fatal]
  - Dyspnoea [Fatal]
  - Muscular weakness [Fatal]
  - Dysstasia [Fatal]
  - Tremor [Fatal]

NARRATIVE: CASE EVENT DATE: 20191004
